FAERS Safety Report 22399766 (Version 2)
Quarter: 2023Q2

REPORT INFORMATION
  Report Type: Spontaneous
  Country: US (occurrence: US)
  Receive Date: 20230602
  Receipt Date: 20230606
  Transmission Date: 20230722
  Serious: Yes (Hospitalization, Other)
  Sender: FDA-Public Use
  Company Number: US-JNJFOC-20230600392

PATIENT
  Age: 37 Year
  Sex: Female

DRUGS (1)
  1. ACETAMINOPHEN [Suspect]
     Active Substance: ACETAMINOPHEN
     Indication: Myalgia
     Dosage: 1300 MG OF ACETAMINOPHEN INTERMITTENTLY DURING THE PAST WEEK
     Route: 048

REACTIONS (3)
  - Drug-induced liver injury [Recovered/Resolved]
  - Abdominal tenderness [Unknown]
  - Toxicity to various agents [Recovered/Resolved]
